FAERS Safety Report 16956602 (Version 2)
Quarter: 2020Q1

REPORT INFORMATION
  Report Type: Other
  Country: CA (occurrence: CA)
  Receive Date: 20191024
  Receipt Date: 20200218
  Transmission Date: 20200409
  Serious: Yes (Other)
  Sender: FDA-Public Use
  Company Number: CA-PFIZER INC-2019453334

PATIENT
  Age: 11 Month
  Sex: Male

DRUGS (2)
  1. PHENYTOIN. [Suspect]
     Active Substance: PHENYTOIN
     Indication: DYSTONIA
     Dosage: UNK
  2. DIAZEPAM. [Concomitant]
     Active Substance: DIAZEPAM
     Indication: DYSTONIA
     Dosage: UNK
     Route: 065

REACTIONS (4)
  - Choreoathetosis [Unknown]
  - Toxicity to various agents [Unknown]
  - Off label use [Unknown]
  - Product use in unapproved indication [Unknown]
